FAERS Safety Report 16928284 (Version 1)
Quarter: 2019Q4

REPORT INFORMATION
  Report Type: Spontaneous
  Country: US (occurrence: US)
  Receive Date: 20191017
  Receipt Date: 20191017
  Transmission Date: 20200122
  Serious: Yes (Life-Threatening, Hospitalization)
  Sender: FDA-Public Use
  Company Number: US-JNJFOC-20191015412

PATIENT
  Age: 26 Year
  Sex: Female

DRUGS (1)
  1. DIPHENHYDRAMINE HYDROCHLORIDE. [Suspect]
     Active Substance: DIPHENHYDRAMINE HYDROCHLORIDE
     Indication: PRODUCT USED FOR UNKNOWN INDICATION
     Route: 048

REACTIONS (8)
  - Intentional overdose [Unknown]
  - Seizure [Recovered/Resolved]
  - Tachycardia [Recovering/Resolving]
  - Electrocardiogram QT prolonged [Recovered/Resolved]
  - Hypotension [Recovering/Resolving]
  - Pyrexia [Recovering/Resolving]
  - Suicide attempt [Unknown]
  - Delirium [Unknown]
